FAERS Safety Report 11697623 (Version 1)
Quarter: 2015Q4

REPORT INFORMATION
  Report Type: Spontaneous
  Country: BR (occurrence: BR)
  Receive Date: 20151104
  Receipt Date: 20151104
  Transmission Date: 20160304
  Serious: Yes (Other)
  Sender: FDA-Public Use
  Company Number: BR-JNJFOC-20151100143

PATIENT
  Sex: Male

DRUGS (1)
  1. SIMPONI [Suspect]
     Active Substance: GOLIMUMAB
     Indication: RHEUMATOID ARTHRITIS
     Route: 058

REACTIONS (5)
  - Tooth loss [Unknown]
  - Pulpitis dental [Unknown]
  - Peripheral swelling [Unknown]
  - Tooth disorder [Unknown]
  - Limb injury [Unknown]

NARRATIVE: CASE EVENT DATE: 2015
